FAERS Safety Report 25124172 (Version 1)
Quarter: 2025Q1

REPORT INFORMATION
  Report Type: Spontaneous
  Country: CA (occurrence: CA)
  Receive Date: 20250326
  Receipt Date: 20250326
  Transmission Date: 20250408
  Serious: Yes (Death)
  Sender: PFIZER
  Company Number: CA-PFIZER INC-202500062965

PATIENT

DRUGS (2)
  1. PAXLOVID [Interacting]
     Active Substance: NIRMATRELVIR\RITONAVIR
     Indication: COVID-19 treatment
     Dates: start: 2022
  2. RIVAROXABAN [Interacting]
     Active Substance: RIVAROXABAN

REACTIONS (3)
  - Drug interaction [Fatal]
  - Contraindicated product administered [Fatal]
  - Haemorrhage [Fatal]

NARRATIVE: CASE EVENT DATE: 20220101
